FAERS Safety Report 8049417-7 (Version None)
Quarter: 2012Q1

REPORT INFORMATION
  Report Type: 
  Country: None (occurrence: None)
  Receive Date: 20120117
  Receipt Date: 20120111
  Transmission Date: 20120608
  Serious: Yes (Hospitalization)
  Sender: FDA-Public Use
  Company Number: DE-ROCHE-1023339

PATIENT
  Sex: Female
  Weight: 61 kg

DRUGS (3)
  1. AMPICILLIN SODIUM AND SULBACTAM SODIUM [Suspect]
     Indication: OSTEONECROSIS
     Dates: start: 20111204, end: 20111209
  2. AVASTIN [Suspect]
     Indication: BREAST CANCER METASTATIC
     Route: 042
     Dates: start: 20111012, end: 20111023
  3. CORTICOSTEROIDS (UNK INGREDIENTS) [Concomitant]

REACTIONS (1)
  - OSTEONECROSIS OF JAW [None]
